FAERS Safety Report 24967772 (Version 2)
Quarter: 2025Q1

REPORT INFORMATION
  Report Type: Spontaneous
  Country: FR (occurrence: FR)
  Receive Date: 20250214
  Receipt Date: 20250326
  Transmission Date: 20250408
  Serious: Yes (Death, Hospitalization, Other)
  Sender: EXELIXIS
  Company Number: FR-IPSEN Group, Research and Development-2025-03127

PATIENT
  Age: 68 Year
  Sex: Female
  Weight: 43 kg

DRUGS (4)
  1. CABOMETYX [Suspect]
     Active Substance: CABOZANTINIB S-MALATE
     Indication: Renal cancer
     Route: 048
     Dates: start: 202311
  2. CABOMETYX [Suspect]
     Active Substance: CABOZANTINIB S-MALATE
     Dosage: 20 MG, QD
     Route: 048
     Dates: start: 20231208, end: 20250204
  3. NIVOLUMAB [Suspect]
     Active Substance: NIVOLUMAB
     Indication: Product used for unknown indication
     Route: 065
  4. INNOHEP [Concomitant]
     Active Substance: TINZAPARIN SODIUM
     Dates: start: 202403

REACTIONS (2)
  - Haemorrhagic stroke [Fatal]
  - Off label use [Unknown]

NARRATIVE: CASE EVENT DATE: 20231101
